FAERS Safety Report 7479626-7 (Version None)
Quarter: 2011Q2

REPORT INFORMATION
  Report Type: 
  Country: None (occurrence: None)
  Receive Date: 20110513
  Receipt Date: 20110503
  Transmission Date: 20111010
  Serious: Yes (Hospitalization)
  Sender: FDA-Public Use
  Company Number: PHHY2011BR39260

PATIENT
  Sex: Male

DRUGS (5)
  1. SIFROL [Concomitant]
     Indication: PARKINSON'S DISEASE
     Dosage: 1 TABLET THREE TIMES A DAY
  2. TRANQUILIZER [Concomitant]
     Dosage: 1 TABLET TWICE A DAY
  3. EXELON [Suspect]
     Indication: AGGRESSION
     Dosage: 9MG/5CM2 30 SIST (PATCH) 1 PATCH EVERY 24
     Route: 062
  4. SERTRALINE HYDROCHLORIDE [Concomitant]
     Indication: ANXIETY
     Dosage: 1 DF, QD
  5. PROLOPA [Concomitant]
     Indication: PARKINSON'S DISEASE
     Dosage: 1/4 TABLET THREE TIMES A DAY,

REACTIONS (3)
  - PNEUMONIA [None]
  - DENGUE FEVER [None]
  - AGGRESSION [None]
